FAERS Safety Report 5156344-1 (Version None)
Quarter: 2006Q4

REPORT INFORMATION
  Report Type: 
  Country: None (occurrence: None)
  Receive Date: 20061122
  Receipt Date: 20061117
  Transmission Date: 20070319
  Serious: Yes (Hospitalization)
  Sender: FDA-Public Use
  Company Number: GR-GLAXOSMITHKLINE-B0447506A

PATIENT
  Age: 32 Year
  Sex: Female

DRUGS (3)
  1. SEROXAT [Suspect]
     Indication: MAJOR DEPRESSION
     Dosage: 40MG PER DAY
     Route: 065
     Dates: start: 20060801, end: 20061101
  2. DIAZEPAM [Concomitant]
     Indication: DRUG USE FOR UNKNOWN INDICATION
     Route: 065
  3. ALCOHOL [Concomitant]

REACTIONS (1)
  - SUICIDE ATTEMPT [None]
